FAERS Safety Report 7698876-8 (Version None)
Quarter: 2011Q3

REPORT INFORMATION
  Report Type: 
  Country: None (occurrence: None)
  Receive Date: 20110818
  Receipt Date: 20110818
  Transmission Date: 20111222
  Serious: Yes (Life-Threatening, Other)
  Sender: FDA-Public Use
  Company Number: None

PATIENT
  Age: 8 Year
  Sex: Female
  Weight: 26 kg

DRUGS (1)
  1. MORPHINE [Suspect]
     Dosage: PCA IV
     Route: 042
     Dates: start: 20100630

REACTIONS (2)
  - HYPOTENSION [None]
  - DIZZINESS [None]
